FAERS Safety Report 6234823-3 (Version None)
Quarter: 2009Q2

REPORT INFORMATION
  Report Type: 
  Country: None (occurrence: None)
  Receive Date: 20090615
  Receipt Date: 20090602
  Transmission Date: 20091009
  Serious: Yes (Hospitalization)
  Sender: FDA-Public Use
  Company Number: GB-WYE-G03776509

PATIENT

DRUGS (1)
  1. TYGACIL [Suspect]

REACTIONS (4)
  - ABDOMINAL INFECTION [None]
  - ENTEROCOCCAL INFECTION [None]
  - ESCHERICHIA INFECTION [None]
  - PATHOGEN RESISTANCE [None]
